FAERS Safety Report 21299561 (Version 1)
Quarter: 2022Q3

REPORT INFORMATION
  Report Type: Spontaneous
  Country: US (occurrence: None)
  Receive Date: 20220906
  Receipt Date: 20220906
  Transmission Date: 20221026
  Serious: Yes (Life-Threatening, Disabling, Other)
  Sender: FDA-Public Use
  Company Number: None

PATIENT
  Age: 70 Year
  Sex: Male
  Weight: 49.44 kg

DRUGS (13)
  1. FAMOTIDINE [Suspect]
     Active Substance: FAMOTIDINE
     Indication: Gastric pH decreased
     Dosage: FREQUENCY : AT BEDTIME;?
     Route: 048
     Dates: start: 20210904, end: 20220815
  2. SUCRALFATE ORAL SUSP [Concomitant]
  3. PANTOPRAZOLE SODIUM [Concomitant]
     Active Substance: PANTOPRAZOLE SODIUM
  4. VITAMIN B12 [Concomitant]
     Active Substance: CYANOCOBALAMIN
  5. VITAMIN D3 [Concomitant]
     Active Substance: CHOLECALCIFEROL
  6. LYRICA [Concomitant]
     Active Substance: PREGABALIN
  7. MELOXICAM [Concomitant]
     Active Substance: MELOXICAM
  8. ACETAMINOPHEN [Concomitant]
     Active Substance: ACETAMINOPHEN
  9. MELATONIN [Concomitant]
     Active Substance: MELATONIN
  10. multivitamin gumies (kirkland) [Concomitant]
  11. anti diarrheal loperamide hcl [Concomitant]
  12. TYLENOL [Concomitant]
     Active Substance: ACETAMINOPHEN
  13. bio freeze spray [Concomitant]

REACTIONS (16)
  - Arrhythmia [None]
  - Dyspnoea [None]
  - Dizziness [None]
  - Myalgia [None]
  - Arthralgia [None]
  - Asthenia [None]
  - Decreased appetite [None]
  - Abdominal pain [None]
  - Rash [None]
  - Stomatitis [None]
  - Abdominal pain upper [None]
  - Melaena [None]
  - Palpitations [None]
  - Hyperhidrosis [None]
  - Chest pain [None]
  - Arthralgia [None]

NARRATIVE: CASE EVENT DATE: 20211002
